FAERS Safety Report 6456815-1 (Version None)
Quarter: 2009Q4

REPORT INFORMATION
  Report Type: 
  Country: None (occurrence: None)
  Receive Date: 20091124
  Receipt Date: 20091124
  Transmission Date: 20100525
  Serious: Yes (Other)
  Sender: FDA-Public Use
  Company Number: None

PATIENT
  Age: 21 Year
  Sex: Male

DRUGS (1)
  1. CIMZIA [Suspect]
     Dosage: 200MG IN TWO SITES TOTAL -400M Q 3 WEEKS SQ
     Route: 058
     Dates: start: 20080730, end: 20091109

REACTIONS (1)
  - HERPES ZOSTER [None]
